FAERS Safety Report 14285416 (Version 2)
Quarter: 2018Q4

REPORT INFORMATION
  Report Type: Spontaneous
  Country: US (occurrence: US)
  Receive Date: 20171214
  Receipt Date: 20181213
  Transmission Date: 20190204
  Serious: No
  Sender: FDA-Public Use
  Company Number: US-ASTELLAS-2017US025284

PATIENT
  Sex: Female

DRUGS (2)
  1. TARCEVA [Suspect]
     Active Substance: ERLOTINIB HYDROCHLORIDE
     Dosage: 150 MG, ONCE DAILY
     Route: 048
     Dates: start: 20170105
  2. TARCEVA [Suspect]
     Active Substance: ERLOTINIB HYDROCHLORIDE
     Indication: LUNG NEOPLASM MALIGNANT
     Route: 048
     Dates: start: 20170104

REACTIONS (13)
  - Hair growth abnormal [Unknown]
  - Onychoclasis [Unknown]
  - Erythema [Unknown]
  - Alopecia [Unknown]
  - Dry eye [Unknown]
  - Abdominal discomfort [Unknown]
  - Growth of eyelashes [Unknown]
  - Hair texture abnormal [Unknown]
  - Dry skin [Unknown]
  - Hyperaesthesia [Unknown]
  - Hair colour changes [Unknown]
  - Skin fissures [Unknown]
  - Rash [Unknown]
